FAERS Safety Report 4455585-6 (Version None)
Quarter: 2004Q3

REPORT INFORMATION
  Report Type: 
  Country: None (occurrence: None)
  Receive Date: 20040922
  Receipt Date: 20040914
  Transmission Date: 20050211
  Serious: Yes (Other)
  Sender: FDA-Public Use
  Company Number: US-JNJFOC-20040904571

PATIENT
  Sex: Female

DRUGS (6)
  1. DURAGESIC [Suspect]
     Route: 062
     Dates: start: 20040201, end: 20040904
  2. DURAGESIC [Suspect]
     Route: 062
     Dates: start: 20040201, end: 20040904
  3. DURAGESIC [Suspect]
     Route: 062
     Dates: start: 20040201, end: 20040904
  4. PROMETHAZINE [Concomitant]
     Route: 049
  5. CLONIDINE HCL [Concomitant]
     Route: 049
  6. CLONAZEPAM [Concomitant]
     Route: 049

REACTIONS (2)
  - DRUG WITHDRAWAL SYNDROME [None]
  - SUICIDAL IDEATION [None]
